FAERS Safety Report 4543906-5 (Version None)
Quarter: 2005Q1

REPORT INFORMATION
  Report Type: 
  Country: None (occurrence: None)
  Receive Date: 20050103
  Receipt Date: 20040128
  Transmission Date: 20050727
  Serious: Yes (Hospitalization)
  Sender: FDA-Public Use
  Company Number: GXKR2004DE00530

PATIENT
  Age: 80 Year
  Sex: Male
  Weight: 92 kg

DRUGS (5)
  1. AMILORIDE+HYDROCHLOROTHIAZIDE (NGX)(AMILORIDE, HYDROCHLOROTHIAZIDE) UN [Suspect]
     Indication: HYPERTENSION
     Dosage: 1 TABLET, ORAL
     Route: 048
  2. ALLOPURINOL [Suspect]
     Indication: HYPERURICAEMIA
     Dosage: 1 TABLET, ORAL
     Route: 048
     Dates: start: 20011205
  3. ZOLPIDEM TARTRATE [Suspect]
     Indication: SLEEP DISORDER
     Dosage: 0.5 TABLET, ORAL
     Route: 048
     Dates: start: 20011220
  4. PLASTULEN(FERROUS SULFATE, MAGNESIUM OXIDE, YEAST) [Suspect]
     Indication: IRON DEFICIENCY
     Dosage: 1 TABLET, ORAL
     Route: 048
     Dates: start: 20011220
  5. VIANI DISKUS(FLUTICASONE PROPIONATE, SALMETEROL XINAFOATE) [Suspect]
     Indication: CHRONIC OBSTRUCTIVE PULMONARY DISEASE
     Dosage: 2 STROKES, INHALATION
     Route: 055
     Dates: start: 20011220

REACTIONS (6)
  - CHRONIC OBSTRUCTIVE PULMONARY DISEASE [None]
  - CONJUNCTIVITIS [None]
  - IRON DEFICIENCY [None]
  - SLEEP DISORDER [None]
  - STEVENS-JOHNSON SYNDROME [None]
  - TOXIC EPIDERMAL NECROLYSIS [None]
